FAERS Safety Report 4307639-2 (Version None)
Quarter: 2004Q1

REPORT INFORMATION
  Report Type: 
  Country: None (occurrence: None)
  Receive Date: 20040227
  Receipt Date: 20040227
  Transmission Date: 20041129
  Serious: Yes (Life-Threatening, Hospitalization)
  Sender: FDA-Public Use
  Company Number: None

PATIENT
  Age: 50 Year
  Sex: Female
  Weight: 89 kg

DRUGS (7)
  1. LITHIUM 300 MG [Suspect]
     Indication: BIPOLAR DISORDER
     Dosage: 1200 MG DAILY ORAL
     Route: 048
     Dates: start: 20001001, end: 20031030
  2. INSULIN [Concomitant]
  3. ACTOS [Concomitant]
  4. CLONAZEPAM [Concomitant]
  5. ZYPREXA [Concomitant]
  6. LISINOPRIL [Concomitant]
  7. GLUCOPHAGE [Concomitant]

REACTIONS (9)
  - CONFUSIONAL STATE [None]
  - DIALYSIS [None]
  - DIARRHOEA [None]
  - DIZZINESS [None]
  - HEADACHE [None]
  - LACTIC ACIDOSIS [None]
  - NAUSEA [None]
  - THERAPEUTIC AGENT TOXICITY [None]
  - VOMITING [None]
